FAERS Safety Report 13890469 (Version 2)
Quarter: 2017Q3

REPORT INFORMATION
  Report Type: Report from Study
  Country: None (occurrence: BE)
  Receive Date: 20170822
  Receipt Date: 20170823
  Transmission Date: 20171127
  Serious: Yes (Death, Hospitalization)
  Sender: FDA-Public Use
  Company Number: BE-ABBVIE-17P-013-1876802-00

PATIENT
  Sex: Male

DRUGS (4)
  1. DUODOPA [Suspect]
     Active Substance: CARBIDOPA\LEVODOPA
     Dosage: AM= 6 ML ; CD= 2.4 ML/H DURING 16 HRS; ED= 2 ML
     Route: 050
     Dates: start: 20170207
  2. DUODOPA [Suspect]
     Active Substance: CARBIDOPA\LEVODOPA
     Dosage: AM= 6 ML ; CD= 2.4 ML/H DURING 16 HRS; ED= 2 ML
     Route: 050
     Dates: start: 20161221, end: 20170207
  3. DUODOPA [Suspect]
     Active Substance: CARBIDOPA\LEVODOPA
     Indication: PARKINSON^S DISEASE
     Dosage: AM= 8 ML; CD= 3.7 ML/H DURING 16 HRS; ED= 2 ML
     Route: 050
     Dates: start: 20160222, end: 20160225
  4. DUODOPA [Suspect]
     Active Substance: CARBIDOPA\LEVODOPA
     Dosage: DOSES CONTINUOUSLY MONITORED AND ADAPTED
     Route: 050
     Dates: start: 20160225, end: 20161221

REACTIONS (5)
  - Dyskinesia [Unknown]
  - Device dislocation [Unknown]
  - Incorrect route of drug administration [Unknown]
  - Hospitalisation [Unknown]
  - General physical health deterioration [Fatal]
